FAERS Safety Report 10990256 (Version 1)
Quarter: 2015Q1

REPORT INFORMATION
  Report Type: Spontaneous
  Country: US (occurrence: None)
  Receive Date: 20150326
  Receipt Date: 20150326
  Transmission Date: 20150721
  Serious: No
  Sender: FDA-Public Use
  Company Number: 1000074474

PATIENT
  Sex: Male

DRUGS (3)
  1. PEPTO BISMOL (BISMUTH SUBSALICYLATE) [Concomitant]
  2. LINZESS [Suspect]
     Active Substance: LINACLOTIDE
     Indication: CONSTIPATION
  3. LINZESS [Suspect]
     Active Substance: LINACLOTIDE
     Indication: IRRITABLE BOWEL SYNDROME

REACTIONS (4)
  - Diarrhoea [None]
  - Pain [None]
  - Intentional product misuse [None]
  - Faeces discoloured [None]
